FAERS Safety Report 8490199-2 (Version None)
Quarter: 2012Q3

REPORT INFORMATION
  Report Type: 
  Country: None (occurrence: None)
  Receive Date: 20120705
  Receipt Date: 20110808
  Transmission Date: 20120928
  Serious: No
  Sender: FDA-Public Use
  Company Number: US-BAUSCH-2011BL005226

PATIENT
  Age: 40 Year
  Sex: Female

DRUGS (1)
  1. OPCON-A [Suspect]
     Route: 047
     Dates: start: 20110807, end: 20110808

REACTIONS (4)
  - VISION BLURRED [None]
  - EYE PAIN [None]
  - WRONG DRUG ADMINISTERED [None]
  - MYDRIASIS [None]
